FAERS Safety Report 13446619 (Version 3)
Quarter: 2020Q3

REPORT INFORMATION
  Report Type: Report from Study
  Country: US (occurrence: US)
  Receive Date: 20170417
  Receipt Date: 20200713
  Transmission Date: 20201102
  Serious: Yes (Hospitalization)
  Sender: FDA-Public Use
  Company Number: US-EISAI MEDICAL RESEARCH-EC-2015-011769

PATIENT
  Age: 60 Year
  Sex: Female

DRUGS (5)
  1. MESALAMINE. [Concomitant]
     Active Substance: MESALAMINE
     Indication: ANAL INFLAMMATION
     Dosage: UNKNOWN
     Route: 054
  2. PROCTOZONE HC [Concomitant]
     Active Substance: HYDROCORTISONE
     Indication: ANAL INFLAMMATION
     Dosage: UNKNOWN
     Route: 061
  3. LENVIMA [Suspect]
     Active Substance: LENVATINIB
     Route: 048
  4. LENVIMA [Suspect]
     Active Substance: LENVATINIB
     Indication: THYROID CANCER
     Route: 048
     Dates: start: 20151015, end: 201709
  5. LENVIMA [Suspect]
     Active Substance: LENVATINIB
     Route: 048

REACTIONS (11)
  - Hyperkeratosis [Recovering/Resolving]
  - Stomatitis [Unknown]
  - Hyperkeratosis [Not Recovered/Not Resolved]
  - Oral pain [Not Recovered/Not Resolved]
  - Liver function test abnormal [Recovered/Resolved]
  - Weight decreased [Recovered/Resolved]
  - Decreased appetite [Recovered/Resolved]
  - Rectal haemorrhage [Not Recovered/Not Resolved]
  - Anal inflammation [Not Recovered/Not Resolved]
  - Hypertension [Recovering/Resolving]
  - Dry mouth [Not Recovered/Not Resolved]

NARRATIVE: CASE EVENT DATE: 201511
